FAERS Safety Report 21564286 (Version 2)
Quarter: 2022Q4

REPORT INFORMATION
  Report Type: Report from Study
  Country: SE (occurrence: SE)
  Receive Date: 20221108
  Receipt Date: 20221124
  Transmission Date: 20230113
  Serious: Yes (Hospitalization, Other)
  Sender: FDA-Public Use
  Company Number: SE-CELLTRION INC.-2021SE014483

PATIENT

DRUGS (36)
  1. RITUXIMAB [Suspect]
     Active Substance: RITUXIMAB
     Indication: Follicular lymphoma
     Dosage: 600 MILLIGRAM (ADDITIONAL INFORMATION ON DRUG:  NOT AVAILABLE)
     Route: 041
     Dates: start: 20210526, end: 20210616
  2. RITUXIMAB [Suspect]
     Active Substance: RITUXIMAB
     Dosage: 375 MICROGRAM/SQ. METER (ADDITIONAL INFORMATION ON DRUG: NOT AVAILABLE)
     Route: 041
     Dates: start: 20210526
  3. RITUXIMAB [Suspect]
     Active Substance: RITUXIMAB
     Dosage: 600 MILLIGRAM (DOSAGE TEXT: ON 09/JUN/2021, SHE RECEIVED RITUXIMAB AT 600MG.) (ADDITIONAL INFORMATIO
     Route: 042
     Dates: start: 20210526, end: 20210721
  4. RITUXIMAB [Suspect]
     Active Substance: RITUXIMAB
     Dosage: 375 MICROGRAM/SQ. METER (ADDITIONAL INFORMATION ON DRUG: NOT AVAILABLE)
     Route: 041
     Dates: start: 20210623
  5. RITUXIMAB [Suspect]
     Active Substance: RITUXIMAB
     Dosage: DATE OF LAST DOSE PRIOR TO EVENT: 04/JAN/2022
     Route: 058
     Dates: start: 20210623
  6. RITUXIMAB [Suspect]
     Active Substance: RITUXIMAB
     Dosage: ON 09/JUN/2021, SHE RECEIVED RITUXIMAB AT 600 MG. ON 23/JUN/2021, SHE RECEIVED DOSE OF RITUXIMAB PRI
     Route: 058
     Dates: start: 20210526, end: 20210616
  7. RITUXIMAB [Suspect]
     Active Substance: RITUXIMAB
     Dosage: UNK
     Route: 058
     Dates: start: 20120807, end: 20121114
  8. EPCORITAMAB [Suspect]
     Active Substance: EPCORITAMAB
     Indication: Follicular lymphoma
     Dosage: 0.16 MILLIGRAM (PHARMACEUTICAL DOSE FORM: 120)
     Route: 048
     Dates: start: 20210526, end: 20210526
  9. EPCORITAMAB [Suspect]
     Active Substance: EPCORITAMAB
     Dosage: 0.8 MILLIGRAM (PHARMACEUTICAL DOSE FORM: 120)
     Route: 048
     Dates: start: 20210602, end: 20210602
  10. EPCORITAMAB [Suspect]
     Active Substance: EPCORITAMAB
     Dosage: 48 MILLIGRAM (PHARMACEUTICAL DOSE FORM: 120)
     Route: 048
     Dates: start: 20210609, end: 20210721
  11. LENALIDOMIDE [Suspect]
     Active Substance: LENALIDOMIDE
     Indication: Follicular lymphoma
     Dosage: 20 MILLIGRAM (PHARMACEUTICAL DOSE FORM: 5)
     Route: 048
     Dates: start: 20210526, end: 20210713
  12. LENALIDOMIDE [Suspect]
     Active Substance: LENALIDOMIDE
     Dosage: (PHARMACEUTICAL DOSE FORM: CAPSULE)
     Route: 065
  13. LENALIDOMIDE [Suspect]
     Active Substance: LENALIDOMIDE
     Dosage: 20 MILLIGRAM (PHARMACEUTICAL DOSE FORM: CAPSULE)
     Route: 048
     Dates: start: 20210526, end: 20210713
  14. LENALIDOMIDE [Suspect]
     Active Substance: LENALIDOMIDE
     Dosage: 20 MILLIGRAM (PHARMACEUTICAL DOSE FORM: 5)
     Route: 048
     Dates: start: 20210721, end: 20210726
  15. LENALIDOMIDE [Suspect]
     Active Substance: LENALIDOMIDE
     Dosage: 20 MILLIGRAM (PHARMACEUTICAL DOSE FORM: 5)
     Route: 048
     Dates: start: 20210526, end: 20210530
  16. LENALIDOMIDE [Suspect]
     Active Substance: LENALIDOMIDE
     Dosage: 20 MILLIGRAM (PHARMACEUTICAL DOSE FORM: 5)
     Route: 048
     Dates: start: 20210601, end: 20210616
  17. LENALIDOMIDE [Suspect]
     Active Substance: LENALIDOMIDE
     Dosage: 20 MILLIGRAM (PHARMACEUTICAL DOSE FORM: 5); (ADDITIONAL INFORMATION ON DRUG: NOT AVAILABLE)
     Route: 048
     Dates: start: 20210623, end: 20210713
  18. LENALIDOMIDE [Suspect]
     Active Substance: LENALIDOMIDE
     Dosage: UNK
     Route: 065
  19. LENALIDOMIDE [Suspect]
     Active Substance: LENALIDOMIDE
     Indication: Follicular lymphoma
     Dosage: 20 MG, EVERY 1 DAY
     Route: 042
     Dates: start: 20210526, end: 20210530
  20. LENALIDOMIDE [Suspect]
     Active Substance: LENALIDOMIDE
     Dosage: 20 MG, EVEY 1 DAY
     Route: 042
     Dates: start: 20210721, end: 20210726
  21. LENALIDOMIDE [Suspect]
     Active Substance: LENALIDOMIDE
     Dosage: 20 MG, EVERY 1 DAY
     Route: 042
     Dates: start: 20210623, end: 20210713
  22. LENALIDOMIDE [Suspect]
     Active Substance: LENALIDOMIDE
     Dosage: 20 MG, EVERY 1 DAY
     Route: 042
     Dates: start: 20210601, end: 20210616
  23. RITUXIMAB [Suspect]
     Active Substance: RITUXIMAB
     Indication: Follicular lymphoma
     Dosage: UNK
     Route: 048
     Dates: start: 20140502, end: 20140909
  24. ACETAMINOPHEN [Concomitant]
     Active Substance: ACETAMINOPHEN
     Indication: Product used for unknown indication
     Dosage: 1000 MG
     Route: 065
     Dates: start: 20210609, end: 20210609
  25. ACETAMINOPHEN [Concomitant]
     Active Substance: ACETAMINOPHEN
     Indication: Premedication
  26. CETIRIZINE [Concomitant]
     Active Substance: CETIRIZINE HYDROCHLORIDE
     Indication: Product used for unknown indication
     Dosage: 10 MG
     Route: 065
     Dates: start: 20210609, end: 20210609
  27. CETIRIZINE [Concomitant]
     Active Substance: CETIRIZINE HYDROCHLORIDE
     Indication: Premedication
  28. POTASSIUM CHLORIDE [Concomitant]
     Active Substance: POTASSIUM CHLORIDE
     Indication: Product used for unknown indication
     Dosage: UNK
     Route: 065
     Dates: start: 20210102, end: 20210912
  29. OMEPRAZOLE [Concomitant]
     Active Substance: OMEPRAZOLE
     Indication: Product used for unknown indication
     Dosage: UNK
     Route: 065
     Dates: start: 20210518
  30. VALACYCLOVIR HYDROCHLORIDE [Concomitant]
     Active Substance: VALACYCLOVIR HYDROCHLORIDE
     Indication: Product used for unknown indication
     Dosage: UNK
     Route: 065
     Dates: start: 20210518, end: 20220201
  31. ZOPICLONE [Concomitant]
     Active Substance: ZOPICLONE
     Indication: Product used for unknown indication
     Dosage: UNK
     Route: 065
     Dates: start: 20210729, end: 20211109
  32. APIXABAN [Concomitant]
     Active Substance: APIXABAN
     Indication: Product used for unknown indication
     Dosage: UNK
     Route: 065
     Dates: start: 20210526, end: 20211005
  33. SODIUM PICOSULFATE [Concomitant]
     Active Substance: SODIUM PICOSULFATE
     Indication: Product used for unknown indication
     Dosage: UNK
     Route: 065
     Dates: start: 20210602
  34. POLYETHYLENE GLYCOLS [Concomitant]
     Active Substance: POLYETHYLENE GLYCOLS
     Indication: Product used for unknown indication
     Dosage: UNK
     Route: 065
     Dates: start: 20210602
  35. COCILLANA [Concomitant]
     Active Substance: COCILLANA
     Indication: Product used for unknown indication
     Dosage: UNK
     Route: 065
     Dates: start: 20210714, end: 20211014
  36. MEROPENEM [Concomitant]
     Active Substance: MEROPENEM
     Indication: Hypotension
     Dosage: UNK
     Route: 065
     Dates: start: 20210609, end: 20210609

REACTIONS (4)
  - Febrile neutropenia [Unknown]
  - Pneumocystis jirovecii infection [Unknown]
  - Cytokine release syndrome [Unknown]
  - Off label use [Unknown]

NARRATIVE: CASE EVENT DATE: 20210727
